FAERS Safety Report 19804460 (Version 1)
Quarter: 2021Q3

REPORT INFORMATION
  Report Type: Spontaneous
  Country: US (occurrence: US)
  Receive Date: 20210908
  Receipt Date: 20210908
  Transmission Date: 20211014
  Serious: No
  Sender: FDA-Public Use
  Company Number: US-FARMAPROD-202106-0953

PATIENT
  Age: 63 Year
  Sex: Male
  Weight: 97.61 kg

DRUGS (18)
  1. TIZANIDINE HCL [Concomitant]
     Active Substance: TIZANIDINE HYDROCHLORIDE
  2. ATORVASTATIN CALCIUM. [Concomitant]
     Active Substance: ATORVASTATIN CALCIUM
     Indication: HYPERCHOLESTEROLAEMIA
  3. TRAZODONE [Concomitant]
     Active Substance: TRAZODONE HYDROCHLORIDE
     Indication: INSOMNIA
  4. PROZAC [Concomitant]
     Active Substance: FLUOXETINE HYDROCHLORIDE
  5. OXYCODONE [Concomitant]
     Active Substance: OXYCODONE
     Dosage: 5 MG?325 MG
  6. TRILEPTAL [Concomitant]
     Active Substance: OXCARBAZEPINE
  7. BUPROPION. [Concomitant]
     Active Substance: BUPROPION
     Dosage: EXTENDED RELEASE TABLET
  8. PROZAC [Concomitant]
     Active Substance: FLUOXETINE HYDROCHLORIDE
  9. OMEGA VITAMINS [Concomitant]
  10. TRICOR [Concomitant]
     Active Substance: FENOFIBRATE
  11. PROSCAR [Concomitant]
     Active Substance: FINASTERIDE
  12. AMLODIPINE BESYLATE/BENAZEPRIL [Concomitant]
     Indication: HYPERTENSION
  13. AMLODIPINE [Concomitant]
     Active Substance: AMLODIPINE BESYLATE
  14. GABAPENTIN. [Concomitant]
     Active Substance: GABAPENTIN
  15. VITAMIN D3 [Concomitant]
     Active Substance: CHOLECALCIFEROL
  16. OXERVATE [Suspect]
     Active Substance: CENEGERMIN-BKBJ
     Indication: NEUROTROPHIC KERATOPATHY
     Route: 047
     Dates: start: 20210528
  17. ASPIRINE [Concomitant]
     Active Substance: ASPIRIN
  18. LIDODERM [Concomitant]
     Active Substance: LIDOCAINE
     Dosage: PATCH

REACTIONS (1)
  - Pruritus [Recovered/Resolved]

NARRATIVE: CASE EVENT DATE: 202106
